FAERS Safety Report 6089584-8 (Version None)
Quarter: 2009Q1

REPORT INFORMATION
  Report Type: 
  Country: None (occurrence: None)
  Receive Date: 20090224
  Receipt Date: 20090218
  Transmission Date: 20090719
  Serious: Yes (Hospitalization)
  Sender: FDA-Public Use
  Company Number: US-ABBOTT-09P-163-0558209-00

PATIENT
  Sex: Male
  Weight: 93.07 kg

DRUGS (2)
  1. HUMIRA [Suspect]
     Indication: RHEUMATOID ARTHRITIS
     Dates: start: 20070101, end: 20080601
  2. HUMIRA [Suspect]
     Dates: start: 20080601

REACTIONS (4)
  - FIBROMYALGIA [None]
  - KNEE ARTHROPLASTY [None]
  - PAIN [None]
  - RESPIRATORY TRACT INFECTION [None]
